FAERS Safety Report 14057430 (Version 1)
Quarter: 2017Q4

REPORT INFORMATION
  Report Type: Spontaneous
  Country: CN (occurrence: CN)
  Receive Date: 20171006
  Receipt Date: 20171006
  Transmission Date: 20180321
  Serious: Yes (Other)
  Sender: FDA-Public Use
  Company Number: CN-BAYER-2017-187374

PATIENT
  Age: 41 Year
  Sex: Female
  Weight: 70 kg

DRUGS (2)
  1. IOPROMIDE [Suspect]
     Active Substance: IOPROMIDE
     Indication: COMPUTERISED TOMOGRAM CORONARY ARTERY
  2. IOPROMIDE [Suspect]
     Active Substance: IOPROMIDE
     Indication: RADIOISOTOPE SCAN
     Dosage: 75 ML, QD
     Route: 041
     Dates: start: 20170810, end: 20170810

REACTIONS (2)
  - Papule [Recovering/Resolving]
  - Pruritus [Recovering/Resolving]

NARRATIVE: CASE EVENT DATE: 20170810
